FAERS Safety Report 7551243-X (Version None)
Quarter: 2011Q2

REPORT INFORMATION
  Report Type: 
  Country: None (occurrence: None)
  Receive Date: 20110616
  Receipt Date: 20110603
  Transmission Date: 20111010
  Serious: Yes (Hospitalization)
  Sender: FDA-Public Use
  Company Number: PHFR2011GB02932

PATIENT
  Sex: Female

DRUGS (3)
  1. CLOZAPINE [Suspect]
     Indication: SCHIZOPHRENIA
     Route: 048
     Dates: start: 20091231
  2. CLOZAPINE [Suspect]
     Dosage: 75 MGS IN MORNING
     Route: 048
     Dates: start: 20110503
  3. CLOZAPINE [Suspect]
     Dosage: UNK
     Route: 048

REACTIONS (5)
  - INCORRECT DOSE ADMINISTERED [None]
  - TACHYCARDIA [None]
  - HEART RATE INCREASED [None]
  - EMOTIONAL DISTRESS [None]
  - SCHIZOPHRENIA [None]
